FAERS Safety Report 6218916-2 (Version None)
Quarter: 2009Q2

REPORT INFORMATION
  Report Type: 
  Country: None (occurrence: None)
  Receive Date: 20090608
  Receipt Date: 20090529
  Transmission Date: 20091009
  Serious: Yes (Other)
  Sender: FDA-Public Use
  Company Number: US-MYLANLABS-2009S1006410

PATIENT
  Age: 52 Year
  Sex: Female
  Weight: 68.04 kg

DRUGS (11)
  1. FENTANYL TRANSDERMAL SYSTEM [Suspect]
     Indication: PAIN
     Dosage: CHANGED PATCHES Q3D
     Route: 062
     Dates: start: 20081101, end: 20090410
  2. SPIRIVA [Concomitant]
  3. ADVAIR HFA [Concomitant]
  4. ALBUTEROL [Concomitant]
  5. IBUPROFEN [Concomitant]
     Indication: PAIN
  6. NOLVADEX [Concomitant]
     Indication: BREAST CANCER
  7. CLARITIN /00917501/ [Concomitant]
     Indication: HYPERSENSITIVITY
  8. LEXAPRO [Concomitant]
     Indication: MAJOR DEPRESSION
  9. MIDODRINE [Concomitant]
     Indication: CLUSTER HEADACHE
  10. TEMAZEPAM [Concomitant]
     Indication: INSOMNIA
  11. ANASTROZOLE [Concomitant]
     Indication: NEOPLASM MALIGNANT

REACTIONS (16)
  - ALOPECIA [None]
  - BLOOD PRESSURE INCREASED [None]
  - CONFUSIONAL STATE [None]
  - CONTUSION [None]
  - CONVULSION [None]
  - DRUG INEFFECTIVE [None]
  - DRUG WITHDRAWAL SYNDROME [None]
  - DYSKINESIA [None]
  - HYPERHIDROSIS [None]
  - MADAROSIS [None]
  - MEMORY IMPAIRMENT [None]
  - MUSCLE SPASMS [None]
  - OEDEMA PERIPHERAL [None]
  - PAIN IN EXTREMITY [None]
  - VASOCONSTRICTION [None]
  - WALKING DISABILITY [None]
